FAERS Safety Report 7470273-X (Version None)
Quarter: 2011Q2

REPORT INFORMATION
  Report Type: 
  Country: None (occurrence: None)
  Receive Date: 20110510
  Receipt Date: 20110427
  Transmission Date: 20111010
  Serious: Yes (Hospitalization)
  Sender: FDA-Public Use
  Company Number: US-CELGENEUS-163-AB007-11043612

PATIENT
  Sex: Female
  Weight: 148 kg

DRUGS (15)
  1. ABRAXANE [Suspect]
     Indication: BREAST CANCER
  2. VIDAZA [Suspect]
     Indication: BREAST CANCER
  3. ZOFRAN [Concomitant]
     Indication: NAUSEA
     Dosage: 8 MILLIGRAM
     Route: 048
     Dates: start: 20110404, end: 20110408
  4. ALOXI [Concomitant]
     Indication: NAUSEA
     Dosage: .25 MILLIGRAM
     Route: 051
     Dates: start: 20110411, end: 20110411
  5. FASLODEX [Concomitant]
     Route: 065
  6. COMPAZINE [Concomitant]
     Indication: NAUSEA
     Dosage: 10 MILLIGRAM
     Route: 048
  7. CRESTOR [Concomitant]
     Route: 065
  8. ABRAXANE [Suspect]
     Dosage: 100 MILLIGRAM/SQ. METER
     Route: 065
     Dates: start: 20110411, end: 20110411
  9. NEUPOGEN [Concomitant]
     Route: 065
     Dates: start: 20110425, end: 20110429
  10. VITAMIN D [Concomitant]
     Indication: SUPPLEMENTATION THERAPY
     Route: 065
  11. VIDAZA [Suspect]
     Dosage: 75 MILLIGRAM/SQ. METER
     Route: 065
     Dates: start: 20110404, end: 20110408
  12. ZOMETA [Concomitant]
     Route: 065
  13. MEGACE [Concomitant]
     Route: 065
  14. LORTAB [Concomitant]
     Indication: PAIN
     Route: 065
  15. POTASSIUM CHLORIDE [Concomitant]
     Route: 065

REACTIONS (1)
  - DEEP VEIN THROMBOSIS [None]
